FAERS Safety Report 5212826-5 (Version None)
Quarter: 2007Q1

REPORT INFORMATION
  Report Type: 
  Country: None (occurrence: None)
  Receive Date: 20070119
  Receipt Date: 20070108
  Transmission Date: 20070707
  Serious: Yes (Hospitalization, Other)
  Sender: FDA-Public Use
  Company Number: PHMT2006CA02243

PATIENT
  Age: 55 Year
  Sex: Male

DRUGS (6)
  1. CLOZARIL [Suspect]
     Indication: SCHIZOAFFECTIVE DISORDER
     Dosage: 300 MG DAILY
     Route: 048
     Dates: start: 20031120, end: 20061124
  2. SEROQUEL [Concomitant]
     Dosage: 25 MG BID AND 50 QHS
  3. PAXIL [Concomitant]
     Dosage: 40 MG DAILY
  4. LITHIUM CARBONATE [Concomitant]
     Dosage: 600 MG QHS
  5. ATIVAN [Concomitant]
  6. FLUANXOL ^LUNDBECK^ [Concomitant]
     Dosage: 3 MG QHS

REACTIONS (5)
  - ALCOHOLISM [None]
  - COMPARTMENT SYNDROME [None]
  - FASCIOTOMY [None]
  - HYPONATRAEMIA [None]
  - RHABDOMYOLYSIS [None]
